FAERS Safety Report 11448747 (Version 3)
Quarter: 2015Q4

REPORT INFORMATION
  Report Type: Spontaneous
  Country: US (occurrence: US)
  Receive Date: 20150902
  Receipt Date: 20151020
  Transmission Date: 20160304
  Serious: No
  Sender: FDA-Public Use
  Company Number: US-PFIZER INC-2015283961

PATIENT
  Age: 83 Year
  Sex: Female
  Weight: 86 kg

DRUGS (4)
  1. ADVIL [Suspect]
     Active Substance: IBUPROFEN
     Indication: HEADACHE
     Dosage: 500 MG, UNK
  2. NEXIUM 24HR [Suspect]
     Active Substance: ESOMEPRAZOLE MAGNESIUM
     Indication: DYSPEPSIA
     Dosage: 22.3 MG, 1X/DAY
     Route: 048
     Dates: start: 201508, end: 2015
  3. TYLENOL [Suspect]
     Active Substance: ACETAMINOPHEN
     Dosage: 500 MG, UNK
  4. ADVIL [Suspect]
     Active Substance: IBUPROFEN
     Indication: PAIN

REACTIONS (2)
  - Product commingling [Recovered/Resolved]
  - Drug ineffective [Not Recovered/Not Resolved]

NARRATIVE: CASE EVENT DATE: 201508
